FAERS Safety Report 25101334 (Version 1)
Quarter: 2025Q1

REPORT INFORMATION
  Report Type: Spontaneous
  Country: US (occurrence: None)
  Receive Date: 20250320
  Receipt Date: 20250320
  Transmission Date: 20250408
  Serious: Yes (Other)
  Sender: FDA-CTU
  Company Number: None

PATIENT
  Age: 0 Year
  Sex: Female
  Weight: 85.5 kg

DRUGS (5)
  1. SEMAGLUTIDE [Suspect]
     Active Substance: SEMAGLUTIDE
     Indication: Weight decreased
     Route: 050
  2. XANAX [Concomitant]
     Active Substance: ALPRAZOLAM
  3. VITIMAN B12 [Concomitant]
  4. VITIMAN D3 [Concomitant]
  5. WOMENS ONE A DAY VITIMAN [Concomitant]

REACTIONS (8)
  - Headache [None]
  - Dyspepsia [None]
  - Nausea [None]
  - Vomiting [None]
  - Malaise [None]
  - Abdominal pain [None]
  - Dry mouth [None]
  - Hypophagia [None]

NARRATIVE: CASE EVENT DATE: 19860615
